FAERS Safety Report 25906262 (Version 1)
Quarter: 2025Q4

REPORT INFORMATION
  Report Type: Spontaneous
  Country: US (occurrence: US)
  Receive Date: 20251010
  Receipt Date: 20251010
  Transmission Date: 20260118
  Serious: No
  Sender: SANOFI AVENTIS
  Company Number: US-SA-2025SA301429

PATIENT
  Age: 60 Year
  Sex: Female

DRUGS (3)
  1. REZUROCK [Suspect]
     Active Substance: BELUMOSUDIL
     Indication: Graft versus host disease
     Dosage: 200 MG, BID
     Route: 048
     Dates: start: 20250912
  2. REZUROCK [Suspect]
     Active Substance: BELUMOSUDIL
     Indication: Bone marrow transplant
  3. REZUROCK [Suspect]
     Active Substance: BELUMOSUDIL
     Indication: Acute lymphocytic leukaemia

REACTIONS (5)
  - Cardiomegaly [Unknown]
  - Dyspnoea exertional [Unknown]
  - Fatigue [Unknown]
  - Product use in unapproved indication [Unknown]
  - Inappropriate schedule of product administration [Unknown]

NARRATIVE: CASE EVENT DATE: 20250101
